FAERS Safety Report 24172032 (Version 1)
Quarter: 2024Q3

REPORT INFORMATION
  Report Type: Spontaneous
  Country: US (occurrence: US)
  Receive Date: 20240805
  Receipt Date: 20240805
  Transmission Date: 20241017
  Serious: No
  Sender: LEO PHARM
  Company Number: US-LEO Pharma-372446

PATIENT
  Age: 70 Year
  Sex: Female

DRUGS (1)
  1. ADBRY [Suspect]
     Active Substance: TRALOKINUMAB-LDRM
     Indication: Eczema

REACTIONS (6)
  - Rash [Unknown]
  - Pruritus [Unknown]
  - Ocular hyperaemia [Unknown]
  - Sinus congestion [Unknown]
  - Eye pruritus [Unknown]
  - Rash [Unknown]
